FAERS Safety Report 6438251-7 (Version None)
Quarter: 2009Q4

REPORT INFORMATION
  Report Type: 
  Country: None (occurrence: None)
  Receive Date: 20091112
  Receipt Date: 20091028
  Transmission Date: 20100525
  Serious: Yes (Hospitalization, Other)
  Sender: FDA-Public Use
  Company Number: PHEH2009US13260

PATIENT
  Sex: Female
  Weight: 50.122 kg

DRUGS (7)
  1. RECLAST [Suspect]
     Indication: OSTEOPOROSIS
     Dosage: 5 MG ONCE YEARLY
     Dates: start: 20090921, end: 20090921
  2. AZOR (ALPRAZOLAM) [Concomitant]
     Dosage: UNK
     Route: 048
  3. PLAVIX [Concomitant]
     Dosage: 75 MG QD
     Route: 048
  4. ALBUTEROL [Concomitant]
     Dosage: UNK
  5. TENORMIN [Concomitant]
     Dosage: 50 MG, QD
  6. PREVACID [Concomitant]
     Dosage: 30 MG, QD
  7. NITROSTAT [Concomitant]
     Dosage: UNK

REACTIONS (6)
  - CEREBRAL INFARCTION [None]
  - CONFUSIONAL STATE [None]
  - FATIGUE [None]
  - INFLUENZA LIKE ILLNESS [None]
  - MEMORY IMPAIRMENT [None]
  - VOMITING [None]
